FAERS Safety Report 10025781 (Version 1)
Quarter: 2014Q1

REPORT INFORMATION
  Report Type: Spontaneous
  Country: US (occurrence: US)
  Receive Date: 20140320
  Receipt Date: 20140320
  Transmission Date: 20141002
  Serious: No
  Sender: FDA-Public Use
  Company Number: US-009507513-1403USA000812

PATIENT
  Sex: Female
  Weight: 48.73 kg

DRUGS (6)
  1. MIRALAX [Suspect]
     Indication: CONSTIPATION
     Dosage: 0.5 DF, QD
     Route: 048
     Dates: start: 2012
  2. METOPROLOL [Concomitant]
  3. ASPIRIN [Concomitant]
  4. LIPITOR [Concomitant]
  5. PRILOSEC [Concomitant]
  6. SERTRALINE HYDROCHLORIDE [Concomitant]

REACTIONS (3)
  - Incorrect drug administration duration [Unknown]
  - Underdose [Unknown]
  - Product quality issue [Unknown]
